FAERS Safety Report 5416544-X (Version None)
Quarter: 2007Q3

REPORT INFORMATION
  Report Type: 
  Country: None (occurrence: None)
  Receive Date: 20070814
  Receipt Date: 20070814
  Transmission Date: 20080115
  Serious: Yes (Life-Threatening, Hospitalization)
  Sender: FDA-Public Use
  Company Number: None

PATIENT
  Sex: Male
  Weight: 83.48 kg

DRUGS (1)
  1. EXJADE [Suspect]
     Indication: IRON OVERLOAD
     Dosage: NOT LISTED NOT LISTED PO
     Route: 048
     Dates: start: 20070701, end: 20070806

REACTIONS (9)
  - ABDOMINAL PAIN [None]
  - ASCITES [None]
  - CONTUSION [None]
  - DECREASED APPETITE [None]
  - DIARRHOEA [None]
  - FLANK PAIN [None]
  - HEPATIC FAILURE [None]
  - NAUSEA [None]
  - PANCYTOPENIA [None]
